FAERS Safety Report 22214487 (Version 13)
Quarter: 2024Q2

REPORT INFORMATION
  Report Type: Report from Study
  Country: CH (occurrence: CH)
  Receive Date: 20230414
  Receipt Date: 20240514
  Transmission Date: 20240716
  Serious: Yes (Hospitalization, Other)
  Sender: FDA-Public Use
  Company Number: CH-ABBVIE-4720304

PATIENT
  Age: 79 Year
  Sex: Female

DRUGS (3)
  1. CARBIDOPA\LEVODOPA [Suspect]
     Active Substance: CARBIDOPA\LEVODOPA
     Indication: Parkinson^s disease
     Dosage: MD 11.5ML, CRD 4.5ML/H, ED 1.0ML?FREQUENCY TEXT: 16H THERAPY
     Route: 050
     Dates: start: 20230330, end: 20230427
  2. CARBIDOPA\LEVODOPA [Suspect]
     Active Substance: CARBIDOPA\LEVODOPA
     Dosage: MD: 5.0 ML, CRD: 4.5 ML/H, ED: 1.0 ML; CRN: 3.0 ML/H,
     Route: 050
     Dates: start: 20230427
  3. CARBIDOPA\LEVODOPA [Suspect]
     Active Substance: CARBIDOPA\LEVODOPA
     Dosage: MD 7.0ML, CRD 4.2ML/H, ED 1.0ML
     Route: 050
     Dates: start: 20230327, end: 20230330

REACTIONS (32)
  - Abdominal infection [Not Recovered/Not Resolved]
  - Gingival pain [Not Recovered/Not Resolved]
  - Body temperature increased [Not Recovered/Not Resolved]
  - Dyspnoea [Not Recovered/Not Resolved]
  - Akinesia [Recovered/Resolved]
  - Pneumonia [Not Recovered/Not Resolved]
  - Dysphagia [Not Recovered/Not Resolved]
  - Disease risk factor [Unknown]
  - Candida infection [Not Recovered/Not Resolved]
  - Product dose omission issue [Recovered/Resolved]
  - Intensive care [Recovered/Resolved]
  - Device dislocation [Recovered/Resolved]
  - Speech disorder [Not Recovered/Not Resolved]
  - Mobility decreased [Not Recovered/Not Resolved]
  - Device leakage [Unknown]
  - Fatigue [Not Recovered/Not Resolved]
  - Fungal infection [Not Recovered/Not Resolved]
  - Hypophagia [Not Recovered/Not Resolved]
  - Gastrointestinal tube insertion [Not Recovered/Not Resolved]
  - Product use complaint [Not Recovered/Not Resolved]
  - Parkinsonism [Not Recovered/Not Resolved]
  - Product dose omission issue [Recovered/Resolved]
  - Abdominal abscess [Unknown]
  - Asthenia [Not Recovered/Not Resolved]
  - Sepsis [Not Recovered/Not Resolved]
  - Product dose omission issue [Unknown]
  - Dysphagia [Recovered/Resolved]
  - Intensive care [Recovered/Resolved]
  - General physical health deterioration [Not Recovered/Not Resolved]
  - Enteral nutrition [Not Recovered/Not Resolved]
  - Abscess [Unknown]
  - Device programming error [Recovered/Resolved]

NARRATIVE: CASE EVENT DATE: 20230401
